FAERS Safety Report 22262718 (Version 1)
Quarter: 2023Q2

REPORT INFORMATION
  Report Type: Spontaneous
  Country: US (occurrence: US)
  Receive Date: 20230428
  Receipt Date: 20230428
  Transmission Date: 20230721
  Serious: No
  Sender: FDA-Public Use
  Company Number: US-002147023-NVSC2023US095465

PATIENT
  Sex: Female

DRUGS (1)
  1. AFINITOR [Suspect]
     Active Substance: EVEROLIMUS
     Indication: Product used for unknown indication
     Dosage: 10 MG (5X A WEEK)
     Route: 048

REACTIONS (4)
  - Dizziness [Unknown]
  - Aphthous ulcer [Unknown]
  - Dyspnoea [Unknown]
  - Insomnia [Unknown]
